FAERS Safety Report 16030741 (Version 1)
Quarter: 2019Q1

REPORT INFORMATION
  Report Type: Spontaneous
  Country: US (occurrence: US)
  Receive Date: 20190304
  Receipt Date: 20190304
  Transmission Date: 20190418
  Serious: Yes (Other)
  Sender: FDA-Public Use
  Company Number: US-PFIZER INC-2019084859

PATIENT
  Age: 54 Year
  Sex: Female
  Weight: 98.43 kg

DRUGS (1)
  1. CHANTIX [Suspect]
     Active Substance: VARENICLINE TARTRATE
     Indication: SMOKING CESSATION THERAPY
     Dosage: UNK
     Dates: start: 2016, end: 2017

REACTIONS (5)
  - Abdominal distension [Unknown]
  - Nightmare [Recovered/Resolved]
  - Seizure [Unknown]
  - Somnambulism [Unknown]
  - Mastication disorder [Unknown]

NARRATIVE: CASE EVENT DATE: 2016
